FAERS Safety Report 24647748 (Version 2)
Quarter: 2024Q4

REPORT INFORMATION
  Report Type: Spontaneous
  Country: PL (occurrence: PL)
  Receive Date: 20241121
  Receipt Date: 20241213
  Transmission Date: 20250115
  Serious: Yes (Hospitalization, Other)
  Sender: SANOFI AVENTIS
  Company Number: PL-SA-2024SA339077

PATIENT
  Age: 39 Year
  Sex: Male

DRUGS (1)
  1. DUPILUMAB [Suspect]
     Active Substance: DUPILUMAB
     Indication: Dermatitis atopic
     Dosage: UNK

REACTIONS (7)
  - Psoriasis [Recovered/Resolved]
  - Skin lesion [Recovered/Resolved]
  - Papule [Recovered/Resolved]
  - Skin exfoliation [Recovered/Resolved]
  - Erythema [Recovered/Resolved]
  - Dermatitis exfoliative generalised [Recovered/Resolved]
  - Lichenification [Recovered/Resolved]
